FAERS Safety Report 20306652 (Version 2)
Quarter: 2022Q1

REPORT INFORMATION
  Report Type: Spontaneous
  Country: US (occurrence: US)
  Receive Date: 20220106
  Receipt Date: 20220121
  Transmission Date: 20220423
  Serious: Yes (Hospitalization)
  Sender: FDA-Public Use
  Company Number: US-TEVA-2021-US-1995570

PATIENT
  Age: 65 Year
  Sex: Male

DRUGS (5)
  1. METHYLPREDNISOLONE [Suspect]
     Active Substance: METHYLPREDNISOLONE
     Indication: Endocrine ophthalmopathy
     Route: 042
  2. TRIAMCINOLONE [Suspect]
     Active Substance: TRIAMCINOLONE
     Indication: Endocrine ophthalmopathy
     Route: 050
  3. PREDNISONE [Suspect]
     Active Substance: PREDNISONE
     Indication: Endocrine ophthalmopathy
     Route: 048
  4. TEPROTUMUMAB [Suspect]
     Active Substance: TEPROTUMUMAB
     Indication: Endocrine ophthalmopathy
     Route: 050
  5. TEPROTUMUMAB [Suspect]
     Active Substance: TEPROTUMUMAB
     Route: 050

REACTIONS (5)
  - Fatigue [Unknown]
  - Dysgeusia [Unknown]
  - Hypoacusis [Unknown]
  - Rash [Unknown]
  - Drug ineffective [Unknown]
